FAERS Safety Report 6942972-7 (Version None)
Quarter: 2010Q3

REPORT INFORMATION
  Report Type: 
  Country: None (occurrence: None)
  Receive Date: 20100826
  Receipt Date: 20100820
  Transmission Date: 20110219
  Serious: Yes (Other)
  Sender: FDA-Public Use
  Company Number: US-JNJFOC-20100807671

PATIENT
  Age: 84 Year
  Sex: Female
  Weight: 70.31 kg

DRUGS (1)
  1. TYLENOL COLD HEAD CONGESTION SEVERE COOL BURST DAYTIME [Suspect]
     Indication: NASOPHARYNGITIS
     Dosage: 2 CAPLETS EVERY 4 HOURS
     Route: 048

REACTIONS (3)
  - APNOEA [None]
  - CHOKING [None]
  - DYSPNOEA [None]
